FAERS Safety Report 5409848-8 (Version None)
Quarter: 2007Q3

REPORT INFORMATION
  Report Type: 
  Country: None (occurrence: None)
  Receive Date: 20070807
  Receipt Date: 20070726
  Transmission Date: 20080115
  Serious: Yes (Other)
  Sender: FDA-Public Use
  Company Number: GXKR2007DE06451

PATIENT
  Sex: Female

DRUGS (8)
  1. IBUPROFEN TABLETS [Suspect]
     Dosage: 5QD (4GM)
     Route: 048
  2. AMITRIPTYLINE HCL [Concomitant]
  3. ALLOPURINOL [Concomitant]
  4. BEZAFIBRATE [Concomitant]
  5. CAPTOPRIL [Concomitant]
  6. LISINOPRIL [Concomitant]
  7. PIRACETAM [Concomitant]
  8. OMEPRAZOLE [Concomitant]

REACTIONS (2)
  - LOSS OF CONSCIOUSNESS [None]
  - ROAD TRAFFIC ACCIDENT [None]
